FAERS Safety Report 15202951 (Version 5)
Quarter: 2019Q1

REPORT INFORMATION
  Report Type: Other
  Country: US (occurrence: US)
  Receive Date: 20180726
  Receipt Date: 20190325
  Transmission Date: 20190417
  Serious: Yes (Hospitalization)
  Sender: FDA-Public Use
  Company Number: US-ACORDA-ACO_152402_2018

PATIENT
  Age: 57 Year
  Sex: Male

DRUGS (6)
  1. AMPYRA [Suspect]
     Active Substance: DALFAMPRIDINE
     Indication: MULTIPLE SCLEROSIS
     Dosage: 10 MILLIGRAM, BID
     Route: 048
     Dates: start: 20151020
  2. DALFAMPRIDINE. [Suspect]
     Active Substance: DALFAMPRIDINE
     Indication: NYSTAGMUS
     Dosage: 10 MILLIGRAM, TID
     Route: 065
  3. SIROLIMUS. [Concomitant]
     Active Substance: SIROLIMUS
     Indication: PRODUCT USED FOR UNKNOWN INDICATION
     Dosage: UNK
     Route: 065
  4. AMPYRA [Suspect]
     Active Substance: DALFAMPRIDINE
     Dosage: 10 MG, BID
     Route: 048
     Dates: start: 201803
  5. AMINOPYRIDINE [Concomitant]
     Active Substance: DALFAMPRIDINE
     Indication: PRODUCT USED FOR UNKNOWN INDICATION
     Dosage: UNK
     Route: 065
  6. DALFAMPRIDINE. [Suspect]
     Active Substance: DALFAMPRIDINE
     Indication: WERNICKE^S ENCEPHALOPATHY
     Dosage: 5 MILLIGRAM, TID
     Route: 065

REACTIONS (4)
  - Accident [Unknown]
  - Hepatic enzyme increased [Not Recovered/Not Resolved]
  - Peripheral swelling [Recovering/Resolving]
  - Off label use [Unknown]

NARRATIVE: CASE EVENT DATE: 201807
